FAERS Safety Report 10730130 (Version 3)
Quarter: 2015Q2

REPORT INFORMATION
  Report Type: Report from Study
  Country: AR (occurrence: AR)
  Receive Date: 20150122
  Receipt Date: 20150424
  Transmission Date: 20150821
  Serious: Yes (Other)
  Sender: FDA-Public Use
  Company Number: PHHY2014AR067305

PATIENT
  Sex: Female

DRUGS (4)
  1. TOBI PODHALER [Suspect]
     Active Substance: TOBRAMYCIN
     Indication: CYSTIC FIBROSIS
     Dosage: 8 DF, DAILY (4 CAPSULES IN THE MORNING, 4 AT NIGHT)
     Route: 055
     Dates: start: 2012
  2. TOBI PODHALER [Suspect]
     Active Substance: TOBRAMYCIN
     Indication: BACTERIAL DISEASE CARRIER
  3. TOBI PODHALER [Suspect]
     Active Substance: TOBRAMYCIN
     Indication: PSEUDOMONAS INFECTION
  4. INSULIN [Concomitant]
     Active Substance: INSULIN NOS
     Indication: PANCREATIC INSUFFICIENCY
     Route: 065

REACTIONS (8)
  - Obstructive airways disorder [Recovering/Resolving]
  - Bronchospasm [Recovered/Resolved]
  - Asthma [Recovering/Resolving]
  - Disease progression [Unknown]
  - Hypersensitivity [Recovering/Resolving]
  - Chronic obstructive pulmonary disease [Recovering/Resolving]
  - Infective pulmonary exacerbation of cystic fibrosis [Unknown]
  - Cough [Not Recovered/Not Resolved]

NARRATIVE: CASE EVENT DATE: 2012
